FAERS Safety Report 9188157 (Version 3)
Quarter: 2013Q2

REPORT INFORMATION
  Report Type: Report from Study
  Country: RO (occurrence: RO)
  Receive Date: 20130325
  Receipt Date: 20130530
  Transmission Date: 20140414
  Serious: Yes (Other)
  Sender: FDA-Public Use
  Company Number: RO-ABBOTT-13P-135-1065528-00

PATIENT
  Age: 57 Year
  Sex: Male
  Weight: 78 kg

DRUGS (9)
  1. ZEMPLAR [Suspect]
     Indication: HYPERPARATHYROIDISM SECONDARY
     Dosage: 1 MICROGRAM PER DAY
     Route: 048
     Dates: start: 20120427, end: 20121227
  2. ZEMPLAR [Suspect]
     Dosage: 2 MICROGRAM PER DAY
     Route: 048
     Dates: start: 20121227, end: 20130313
  3. PRESTARIUM [Suspect]
     Indication: HYPERTENSION
     Route: 048
     Dates: start: 2002, end: 20130313
  4. LERIDIP [Concomitant]
     Indication: HYPERTENSION
     Route: 048
     Dates: start: 2002
  5. VITAMIN E [Concomitant]
     Indication: RENAL FAILURE CHRONIC
     Route: 048
     Dates: start: 2002
  6. ACETYLCYSTEINE [Concomitant]
     Indication: RENAL FAILURE CHRONIC
     Route: 048
     Dates: start: 2002
  7. DIPYRIDAMOLE [Concomitant]
     Indication: RENAL FAILURE CHRONIC
     Route: 048
     Dates: start: 2002
  8. DICARBOCALM [Concomitant]
     Indication: RENAL FAILURE CHRONIC
     Dosage: (COMBINATION)
     Route: 048
     Dates: start: 2002
  9. ACIFOL [Concomitant]
     Indication: RENAL FAILURE CHRONIC
     Route: 048
     Dates: start: 2002

REACTIONS (4)
  - Blood urea increased [Recovered/Resolved]
  - Renal failure chronic [Recovered/Resolved]
  - Decreased appetite [Unknown]
  - Blood parathyroid hormone increased [Unknown]
